FAERS Safety Report 8967062 (Version 1)
Quarter: 2012Q4

REPORT INFORMATION
  Report Type: 
  Country: PL (occurrence: PL)
  Receive Date: 20121217
  Receipt Date: 20121217
  Transmission Date: 20130627
  Serious: Yes (Other)
  Sender: FDA-Public Use
  Company Number: PHHY2012PL115064

PATIENT
  Age: 43 Year
  Sex: Female

DRUGS (4)
  1. CICLOSPORIN [Suspect]
     Indication: IMMUNOSUPPRESSION
     Dosage: 100 mg
  2. CELLCEPT [Suspect]
     Indication: IMMUNOSUPPRESSION
     Dosage: 1000 mg
  3. ENCORTON [Concomitant]
     Indication: IMMUNOSUPPRESSION
     Dosage: 5 mg
  4. MYFORTIC [Concomitant]
     Dosage: 720 mg, BID

REACTIONS (5)
  - Glomerulonephritis [Unknown]
  - Kidney transplant rejection [Unknown]
  - Renal failure [Unknown]
  - Renal impairment [Recovering/Resolving]
  - Diarrhoea [Recovering/Resolving]
